FAERS Safety Report 13225231 (Version 1)
Quarter: 2017Q1

REPORT INFORMATION
  Report Type: Spontaneous
  Country: JP (occurrence: JP)
  Receive Date: 20170213
  Receipt Date: 20170213
  Transmission Date: 20170428
  Serious: Yes (Hospitalization)
  Sender: FDA-Public Use
  Company Number: JP-ROCHE-1892755

PATIENT
  Age: 92 Year
  Sex: Female
  Weight: 43 kg

DRUGS (7)
  1. ALFAROL [Concomitant]
     Active Substance: ALFACALCIDOL
     Route: 048
  2. ROCEPHIN [Suspect]
     Active Substance: CEFTRIAXONE SODIUM
     Indication: PNEUMONIA
     Route: 042
     Dates: start: 20160517, end: 20160530
  3. DAIKENCHUTO [Concomitant]
     Active Substance: HERBALS
     Route: 048
  4. FERRIC CITRATE [Concomitant]
     Active Substance: TETRAFERRIC TRICITRATE DECAHYDRATE
     Dosage: REPORTED AS RIONA
     Route: 048
  5. CRESTOR [Concomitant]
     Active Substance: ROSUVASTATIN CALCIUM
     Route: 048
  6. ADALAT CC [Concomitant]
     Active Substance: NIFEDIPINE
     Route: 048
  7. CLARITIN [Concomitant]
     Active Substance: LORATADINE
     Route: 048

REACTIONS (1)
  - Cholecystitis [Recovering/Resolving]

NARRATIVE: CASE EVENT DATE: 20160603
